FAERS Safety Report 8976920 (Version 2)
Quarter: 2013Q1

REPORT INFORMATION
  Report Type: Report from Study
  Country: US (occurrence: US)
  Receive Date: 20121220
  Receipt Date: 20130103
  Transmission Date: 20140127
  Serious: Yes (Other)
  Sender: FDA-Public Use
  Company Number: US-VERTEX PHARMACEUTICALS INC.-2012-026384

PATIENT
  Age: 49 Year
  Sex: Female
  Weight: 100 kg

DRUGS (10)
  1. VX-950 (TELAPREVIR) [Suspect]
     Indication: HEPATITIS C
     Dosage: 750 MG, TID
     Route: 048
  2. PEGASYS [Suspect]
     Indication: HEPATITIS C
     Dosage: 180 ?G, UNK
  3. RIBAVIRIN [Suspect]
     Indication: HEPATITIS C
     Dosage: 200 MG, UNK
  4. VICODIN [Concomitant]
  5. METHOTREXATE [Concomitant]
     Dosage: 75 MG, UNK
  6. PAXIL [Concomitant]
     Dosage: 10 MG, UNK
  7. METFORMIN [Concomitant]
     Dosage: 500 MG, UNK
  8. LIDODERM [Concomitant]
     Dosage: 5 %, UNK
  9. ACTOS [Concomitant]
     Dosage: 15 MG, UNK
  10. HYDROCHLOROTHIAZIDE WITH TRIAMTERENE [Concomitant]
     Dosage: 25-37.5
     Route: 048

REACTIONS (3)
  - Self-injurious ideation [Unknown]
  - Depression [Unknown]
  - Pruritus [Unknown]
